FAERS Safety Report 5809888-0 (Version None)
Quarter: 2008Q3

REPORT INFORMATION
  Report Type: 
  Country: None (occurrence: None)
  Receive Date: 20080714
  Receipt Date: 20080714
  Transmission Date: 20090109
  Serious: Yes (Disabling, Other)
  Sender: FDA-Public Use
  Company Number: None

PATIENT
  Age: 54 Year
  Sex: Female
  Weight: 86.1834 kg

DRUGS (1)
  1. CIPROFLOXACIN HCL [Suspect]
     Dosage: 1 TABLET TWICA A DAY PO
     Route: 048
     Dates: start: 20070511

REACTIONS (3)
  - ABASIA [None]
  - ARTHRALGIA [None]
  - TENDONITIS [None]
